FAERS Safety Report 25433050 (Version 1)
Quarter: 2025Q2

REPORT INFORMATION
  Report Type: Spontaneous
  Country: CA (occurrence: CA)
  Receive Date: 20250613
  Receipt Date: 20250613
  Transmission Date: 20250716
  Serious: Yes (Death, Life-Threatening, Hospitalization, Disabling, Other)
  Sender: Haleon PLC
  Company Number: CA-HALEON-2246647

PATIENT
  Age: 80 Year
  Sex: Male
  Weight: 69 kg

DRUGS (224)
  1. FLONASE ALLERGY RELIEF [Suspect]
     Active Substance: FLUTICASONE PROPIONATE
     Indication: Product used for unknown indication
  2. FLONASE ALLERGY RELIEF [Suspect]
     Active Substance: FLUTICASONE PROPIONATE
     Indication: Nutritional supplementation
  3. CEFTRIAXONE SODIUM [Suspect]
     Active Substance: CEFTRIAXONE SODIUM
     Indication: Bacterial infection
     Route: 042
  4. CEFTRIAXONE SODIUM [Suspect]
     Active Substance: CEFTRIAXONE SODIUM
     Indication: Bacterial infection
     Route: 042
  5. CEFTRIAXONE SODIUM [Suspect]
     Active Substance: CEFTRIAXONE SODIUM
  6. CEFTRIAXONE SODIUM [Suspect]
     Active Substance: CEFTRIAXONE SODIUM
  7. DOBUTAMINE [Suspect]
     Active Substance: DOBUTAMINE HYDROCHLORIDE
     Indication: Product used for unknown indication
     Route: 042
  8. DOBUTAMINE [Suspect]
     Active Substance: DOBUTAMINE HYDROCHLORIDE
     Indication: Off label use
  9. DOBUTAMINE [Suspect]
     Active Substance: DOBUTAMINE HYDROCHLORIDE
     Indication: Cardiogenic shock
  10. HEPARIN SODIUM [Suspect]
     Active Substance: HEPARIN SODIUM
     Indication: Product used for unknown indication
     Route: 042
  11. HEPARIN SODIUM [Suspect]
     Active Substance: HEPARIN SODIUM
     Indication: Anticoagulant therapy
     Dosage: DOSE FORM: SOLUTION FOR INJECTION/INFUSION
     Route: 042
  12. HEPARIN SODIUM [Suspect]
     Active Substance: HEPARIN SODIUM
     Dosage: DOSE FORM: SOLUTION FOR INJECTION/INFUSION
     Route: 017
  13. HEPARIN SODIUM [Suspect]
     Active Substance: HEPARIN SODIUM
     Route: 017
  14. HEPARIN SODIUM [Suspect]
     Active Substance: HEPARIN SODIUM
     Dosage: DOSE FORM: SOLUTION FOR INJECTION/INFUSION
     Route: 017
  15. HEPARIN SODIUM [Suspect]
     Active Substance: HEPARIN SODIUM
     Route: 042
  16. HEPARIN SODIUM [Suspect]
     Active Substance: HEPARIN SODIUM
     Route: 042
  17. HEPARIN SODIUM [Suspect]
     Active Substance: HEPARIN SODIUM
     Route: 017
  18. HEPARIN SODIUM [Suspect]
     Active Substance: HEPARIN SODIUM
  19. HEPARIN SODIUM [Suspect]
     Active Substance: HEPARIN SODIUM
     Dosage: DOSE FORM: SOLUTION FOR INJECTION/INFUSION
     Route: 042
  20. HEPARIN SODIUM [Suspect]
     Active Substance: HEPARIN SODIUM
     Dosage: DOSE FORM: SOLUTION FOR INJECTION/INFUSION
     Route: 042
  21. HEPARIN SODIUM [Suspect]
     Active Substance: HEPARIN SODIUM
     Route: 042
  22. HYDROMORPHONE [Suspect]
     Active Substance: HYDROMORPHONE
     Indication: Analgesic therapy
     Route: 058
  23. HYDROMORPHONE [Suspect]
     Active Substance: HYDROMORPHONE
     Route: 058
  24. HYDROMORPHONE [Suspect]
     Active Substance: HYDROMORPHONE
     Route: 058
  25. HYDROMORPHONE [Suspect]
     Active Substance: HYDROMORPHONE
     Route: 058
  26. HYDROMORPHONE [Suspect]
     Active Substance: HYDROMORPHONE
     Route: 058
  27. HYDROMORPHONE [Suspect]
     Active Substance: HYDROMORPHONE
     Dosage: DOSAGE FORM: UNKNOWN
     Route: 058
  28. HYDROMORPHONE [Suspect]
     Active Substance: HYDROMORPHONE
     Dosage: DOSAGE FORM AND ROA: UNKNOWN
  29. HYDROMORPHONE [Suspect]
     Active Substance: HYDROMORPHONE
     Dosage: DOSAGE FORM AND ROA: UNKNOWN
  30. HYDROMORPHONE [Suspect]
     Active Substance: HYDROMORPHONE
  31. HYDROMORPHONE [Suspect]
     Active Substance: HYDROMORPHONE
     Route: 058
  32. HYDROMORPHONE [Suspect]
     Active Substance: HYDROMORPHONE
     Dosage: DOSAGE FORM: UNKNOWN
     Route: 058
  33. HYDROMORPHONE [Suspect]
     Active Substance: HYDROMORPHONE
     Dosage: DOSAGE FORM: UNKNOWN
     Route: 058
  34. HYDROMORPHONE HYDROCHLORIDE [Suspect]
     Active Substance: HYDROMORPHONE HYDROCHLORIDE
     Indication: Product used for unknown indication
     Route: 058
  35. HYDROMORPHONE HYDROCHLORIDE [Suspect]
     Active Substance: HYDROMORPHONE HYDROCHLORIDE
     Indication: Off label use
     Dosage: DOSE FORM: UNKNOWN
     Route: 058
  36. HYDROMORPHONE HYDROCHLORIDE [Suspect]
     Active Substance: HYDROMORPHONE HYDROCHLORIDE
     Indication: Intentional product misuse
  37. HYDROMORPHONE HYDROCHLORIDE [Suspect]
     Active Substance: HYDROMORPHONE HYDROCHLORIDE
     Indication: Analgesic therapy
     Route: 058
  38. HYDROMORPHONE HYDROCHLORIDE [Suspect]
     Active Substance: HYDROMORPHONE HYDROCHLORIDE
     Route: 058
  39. HYDROMORPHONE HYDROCHLORIDE [Suspect]
     Active Substance: HYDROMORPHONE HYDROCHLORIDE
     Route: 058
  40. HYDROMORPHONE HYDROCHLORIDE [Suspect]
     Active Substance: HYDROMORPHONE HYDROCHLORIDE
     Route: 058
  41. HYDROMORPHONE HYDROCHLORIDE [Suspect]
     Active Substance: HYDROMORPHONE HYDROCHLORIDE
     Route: 058
  42. HYDROMORPHONE HYDROCHLORIDE [Suspect]
     Active Substance: HYDROMORPHONE HYDROCHLORIDE
     Route: 058
  43. HYDROMORPHONE HYDROCHLORIDE [Suspect]
     Active Substance: HYDROMORPHONE HYDROCHLORIDE
     Dosage: DOSE FORM: UNKNOWN
     Route: 058
  44. HYDROMORPHONE HYDROCHLORIDE [Suspect]
     Active Substance: HYDROMORPHONE HYDROCHLORIDE
     Route: 058
  45. HYDROMORPHONE HYDROCHLORIDE [Suspect]
     Active Substance: HYDROMORPHONE HYDROCHLORIDE
     Route: 058
  46. HYDROMORPHONE HYDROCHLORIDE [Suspect]
     Active Substance: HYDROMORPHONE HYDROCHLORIDE
     Route: 058
  47. HYDROMORPHONE HYDROCHLORIDE [Suspect]
     Active Substance: HYDROMORPHONE HYDROCHLORIDE
     Dosage: DOSE FORM AND ROA: UNKNOWN
  48. POTASSIUM CHLORIDE [Suspect]
     Active Substance: POTASSIUM CHLORIDE
     Indication: Product used for unknown indication
  49. POTASSIUM CHLORIDE [Suspect]
     Active Substance: POTASSIUM CHLORIDE
     Indication: Constipation
  50. POTASSIUM CHLORIDE [Suspect]
     Active Substance: POTASSIUM CHLORIDE
     Indication: Product used for unknown indication
     Route: 048
  51. POTASSIUM CHLORIDE [Suspect]
     Active Substance: POTASSIUM CHLORIDE
     Indication: Constipation
  52. ALBUTEROL [Suspect]
     Active Substance: ALBUTEROL
     Indication: Product used for unknown indication
     Dosage: ROA: RESPIRATORY (INHALATION)
  53. ALBUTEROL [Suspect]
     Active Substance: ALBUTEROL
     Indication: Off label use
  54. ALBUTEROL [Suspect]
     Active Substance: ALBUTEROL
     Indication: Intentional product misuse
     Dosage: DOSE FORM AND ROA: UNKNOWN
  55. ALBUTEROL [Suspect]
     Active Substance: ALBUTEROL
     Indication: Chronic obstructive pulmonary disease
     Dosage: DOSE FORM: UNKNOWN ROA: RESPIRATORY (INHALATION)
  56. ALBUTEROL [Suspect]
     Active Substance: ALBUTEROL
  57. ALBUTEROL [Suspect]
     Active Substance: ALBUTEROL
     Dosage: DOSE FORM: UNKNOWN?ROA: RESPIRATORY (INHALATION)
  58. ALBUTEROL [Suspect]
     Active Substance: ALBUTEROL
     Dosage: DOSE FORM AND ROA: UNKNOWN
  59. ALBUTEROL [Suspect]
     Active Substance: ALBUTEROL
     Dosage: DOSE FORM : UNKNOWN?ROA: RESPIRATORY (INHALATION)
  60. ALBUTEROL [Suspect]
     Active Substance: ALBUTEROL
  61. ALBUTEROL [Suspect]
     Active Substance: ALBUTEROL
     Dosage: DOSE FORM AND ROA: UNKNOWN
  62. ALBUTEROL [Suspect]
     Active Substance: ALBUTEROL
  63. ALBUTEROL [Suspect]
     Active Substance: ALBUTEROL
  64. ALBUTEROL [Suspect]
     Active Substance: ALBUTEROL
  65. ALBUTEROL [Suspect]
     Active Substance: ALBUTEROL
     Dosage: DOSE FORM: UNKNOWN?ROA: RESPIRATORY (INHALATION)
  66. ALBUTEROL [Suspect]
     Active Substance: ALBUTEROL
  67. ALBUTEROL [Suspect]
     Active Substance: ALBUTEROL
  68. ALBUTEROL [Suspect]
     Active Substance: ALBUTEROL
     Dosage: DOSE FORM AND ROA: UNKNOWN
  69. ALBUTEROL [Suspect]
     Active Substance: ALBUTEROL
     Dosage: DOSE FORM AND ROA: UNKNOWN
  70. ALBUTEROL [Suspect]
     Active Substance: ALBUTEROL
  71. ALBUTEROL [Suspect]
     Active Substance: ALBUTEROL
  72. ALBUTEROL [Suspect]
     Active Substance: ALBUTEROL
  73. ALBUTEROL [Suspect]
     Active Substance: ALBUTEROL
  74. ALBUTEROL [Suspect]
     Active Substance: ALBUTEROL
  75. ALBUTEROL [Suspect]
     Active Substance: ALBUTEROL
  76. ALBUTEROL [Suspect]
     Active Substance: ALBUTEROL
     Dosage: DOSE FORM AND ROA: UNKNOWN
  77. ALBUTEROL [Suspect]
     Active Substance: ALBUTEROL
  78. ALBUTEROL [Suspect]
     Active Substance: ALBUTEROL
  79. ALBUTEROL [Suspect]
     Active Substance: ALBUTEROL
     Dosage: DOSE FORM AND ROA: UNKNOWN
  80. ALBUTEROL [Suspect]
     Active Substance: ALBUTEROL
  81. ALBUTEROL [Suspect]
     Active Substance: ALBUTEROL
     Dosage: DOSE FORM AND ROA: UNKNOWN
  82. ALBUTEROL [Suspect]
     Active Substance: ALBUTEROL
  83. ALBUTEROL [Suspect]
     Active Substance: ALBUTEROL
     Dosage: DOSE FORM AND ROA: UNKNOWN
  84. ALBUTEROL [Suspect]
     Active Substance: ALBUTEROL
  85. ALBUTEROL [Suspect]
     Active Substance: ALBUTEROL
  86. ALBUTEROL [Suspect]
     Active Substance: ALBUTEROL
     Dosage: DOSE FORM AND ROA: UNKNOWN
  87. ALBUTEROL [Suspect]
     Active Substance: ALBUTEROL
     Dosage: DOSE FORM: UNKNOWN?ROA: RESPIRATORY (INHALATION)
  88. ALBUTEROL [Suspect]
     Active Substance: ALBUTEROL
     Dosage: DOSE FORM AND ROA: UNKNOWN
  89. ALBUTEROL [Suspect]
     Active Substance: ALBUTEROL
  90. ALBUTEROL [Suspect]
     Active Substance: ALBUTEROL
  91. ALBUTEROL [Suspect]
     Active Substance: ALBUTEROL
     Dosage: DOSE FORM : UNKNOWN?ROA: RESPIRATORY (INHALATION)
  92. ALBUTEROL [Suspect]
     Active Substance: ALBUTEROL
     Dosage: DOSE FORM : UNKNOWN?ROA: RESPIRATORY (INHALATION)
  93. DOCUSATE SODIUM [Suspect]
     Active Substance: DOCUSATE SODIUM
     Indication: Product used for unknown indication
  94. ONDANSETRON [Suspect]
     Active Substance: ONDANSETRON
     Indication: Vomiting
     Dosage: DOSE FORM: UNKNOWN
     Route: 042
  95. ONDANSETRON [Suspect]
     Active Substance: ONDANSETRON
     Indication: Product used for unknown indication
     Dosage: DOSE FORM: UNKNOWN
     Route: 042
  96. ONDANSETRON [Suspect]
     Active Substance: ONDANSETRON
     Indication: Off label use
     Dosage: DOSE FORM: UNKNOWN
     Route: 042
  97. ONDANSETRON [Suspect]
     Active Substance: ONDANSETRON
     Indication: Nausea
     Dosage: DOSE FORM: UNKNOWN
     Route: 042
  98. ONDANSETRON [Suspect]
     Active Substance: ONDANSETRON
     Route: 042
  99. ONDANSETRON [Suspect]
     Active Substance: ONDANSETRON
     Dosage: DOSE FORM: UNKNOWN
     Route: 042
  100. ONDANSETRON [Suspect]
     Active Substance: ONDANSETRON
     Route: 042
  101. ONDANSETRON [Suspect]
     Active Substance: ONDANSETRON
  102. ONDANSETRON [Suspect]
     Active Substance: ONDANSETRON
     Route: 042
  103. ONDANSETRON [Suspect]
     Active Substance: ONDANSETRON
     Route: 042
  104. ONDANSETRON [Suspect]
     Active Substance: ONDANSETRON
     Dosage: DOSE FORM: UNKNOWN
     Route: 042
  105. ONDANSETRON [Suspect]
     Active Substance: ONDANSETRON
     Dosage: DOSE FORM: UNKNOWN
     Route: 042
  106. ONDANSETRON [Suspect]
     Active Substance: ONDANSETRON
     Route: 042
  107. ONDANSETRON [Suspect]
     Active Substance: ONDANSETRON
     Dosage: DOSE FORM: UNKNOWN
     Route: 042
  108. ONDANSETRON [Suspect]
     Active Substance: ONDANSETRON
     Route: 042
  109. ONDANSETRON [Suspect]
     Active Substance: ONDANSETRON
     Route: 042
  110. ONDANSETRON [Suspect]
     Active Substance: ONDANSETRON
  111. ONDANSETRON [Suspect]
     Active Substance: ONDANSETRON
     Route: 042
  112. ONDANSETRON [Suspect]
     Active Substance: ONDANSETRON
     Route: 042
  113. ONDANSETRON [Suspect]
     Active Substance: ONDANSETRON
  114. ONDANSETRON [Suspect]
     Active Substance: ONDANSETRON
     Route: 042
  115. ONDANSETRON [Suspect]
     Active Substance: ONDANSETRON
  116. ONDANSETRON [Suspect]
     Active Substance: ONDANSETRON
     Route: 012
  117. ONDANSETRON [Suspect]
     Active Substance: ONDANSETRON
     Route: 042
  118. ONDANSETRON [Suspect]
     Active Substance: ONDANSETRON
     Route: 042
  119. ONDANSETRON [Suspect]
     Active Substance: ONDANSETRON
     Route: 042
  120. ONDANSETRON [Suspect]
     Active Substance: ONDANSETRON
     Route: 042
  121. ONDANSETRON [Suspect]
     Active Substance: ONDANSETRON
     Route: 042
  122. ONDANSETRON [Suspect]
     Active Substance: ONDANSETRON
     Dosage: DOSE FORM: UNKNOWN
     Route: 048
  123. ONDANSETRON [Suspect]
     Active Substance: ONDANSETRON
     Dosage: DOSE FORM: UNKNOWN
     Route: 048
  124. ONDANSETRON [Suspect]
     Active Substance: ONDANSETRON
     Route: 042
  125. ONDANSETRON [Suspect]
     Active Substance: ONDANSETRON
     Route: 042
  126. ONDANSETRON [Suspect]
     Active Substance: ONDANSETRON
     Dosage: DOSE FORM: UNKNOWN
     Route: 042
  127. ONDANSETRON [Suspect]
     Active Substance: ONDANSETRON
     Dosage: DOSE FORM: UNKNOWN
     Route: 042
  128. ONDANSETRON [Suspect]
     Active Substance: ONDANSETRON
     Dosage: DOSE FORM: UNKNOWN
     Route: 042
  129. ONDANSETRON [Suspect]
     Active Substance: ONDANSETRON
     Route: 042
  130. ONDANSETRON [Suspect]
     Active Substance: ONDANSETRON
     Dosage: DOSE FORM: UNKNOWN
     Route: 042
  131. ALLOPURINOL [Suspect]
     Active Substance: ALLOPURINOL
     Indication: Product used for unknown indication
     Route: 048
  132. ALLOPURINOL [Suspect]
     Active Substance: ALLOPURINOL
     Indication: Off label use
  133. ALLOPURINOL [Suspect]
     Active Substance: ALLOPURINOL
     Indication: Intentional product misuse
  134. ALLOPURINOL [Suspect]
     Active Substance: ALLOPURINOL
     Indication: Blood uric acid increased
  135. ALLOPURINOL [Suspect]
     Active Substance: ALLOPURINOL
     Indication: Product used for unknown indication
     Dosage: DOSE FORM: UNKNOWN
     Route: 048
  136. ALLOPURINOL [Suspect]
     Active Substance: ALLOPURINOL
     Indication: Off label use
     Dosage: DOSE FORM: UNKNOWN
     Route: 048
  137. ALLOPURINOL [Suspect]
     Active Substance: ALLOPURINOL
     Indication: Intentional product misuse
  138. ALLOPURINOL [Suspect]
     Active Substance: ALLOPURINOL
     Indication: Blood uric acid increased
  139. ALLOPURINOL [Suspect]
     Active Substance: ALLOPURINOL
  140. ALLOPURINOL [Suspect]
     Active Substance: ALLOPURINOL
     Dosage: DOSE FORM: UNKNOWN
     Route: 048
  141. ALLOPURINOL [Suspect]
     Active Substance: ALLOPURINOL
     Dosage: DOSE FORM: UNKNOWN
     Route: 048
  142. DOBUTAMINE [Suspect]
     Active Substance: DOBUTAMINE HYDROCHLORIDE
     Indication: Product used for unknown indication
     Route: 042
  143. DOBUTAMINE [Suspect]
     Active Substance: DOBUTAMINE HYDROCHLORIDE
     Indication: Off label use
  144. DOBUTAMINE [Suspect]
     Active Substance: DOBUTAMINE HYDROCHLORIDE
     Indication: Cardiogenic shock
  145. GABAPENTIN [Suspect]
     Active Substance: GABAPENTIN
     Indication: Product used for unknown indication
  146. GABAPENTIN [Suspect]
     Active Substance: GABAPENTIN
     Indication: Off label use
     Route: 048
  147. GABAPENTIN [Suspect]
     Active Substance: GABAPENTIN
     Indication: Neuralgia
     Dosage: DOSAGE FORM: UNKNOWN
     Route: 048
  148. GABAPENTIN [Suspect]
     Active Substance: GABAPENTIN
     Indication: Intentional product misuse
     Route: 048
  149. GABAPENTIN [Suspect]
     Active Substance: GABAPENTIN
     Dosage: DOSAGE FORM: UNKNOWN
     Route: 048
  150. METRONIDAZOLE [Suspect]
     Active Substance: METRONIDAZOLE
     Indication: Bacterial infection
     Route: 048
  151. METRONIDAZOLE [Suspect]
     Active Substance: METRONIDAZOLE
  152. METRONIDAZOLE [Suspect]
     Active Substance: METRONIDAZOLE
  153. METRONIDAZOLE [Suspect]
     Active Substance: METRONIDAZOLE
  154. METRONIDAZOLE [Suspect]
     Active Substance: METRONIDAZOLE
  155. METRONIDAZOLE [Suspect]
     Active Substance: METRONIDAZOLE
     Dosage: DOSE FORM: UNKNOWN
     Route: 048
  156. METRONIDAZOLE [Suspect]
     Active Substance: METRONIDAZOLE
     Route: 048
  157. METRONIDAZOLE [Suspect]
     Active Substance: METRONIDAZOLE
     Route: 048
  158. METRONIDAZOLE [Suspect]
     Active Substance: METRONIDAZOLE
     Dosage: DOSE FORM : UNKNOWN
     Route: 048
  159. METRONIDAZOLE [Suspect]
     Active Substance: METRONIDAZOLE
     Route: 048
  160. METRONIDAZOLE [Suspect]
     Active Substance: METRONIDAZOLE
  161. NOREPINEPHRINE [Suspect]
     Active Substance: NOREPINEPHRINE
     Indication: Stress
     Route: 048
  162. NOREPINEPHRINE [Suspect]
     Active Substance: NOREPINEPHRINE
     Dosage: DOSAGE FORM: UNKNOWN
     Route: 042
  163. NOREPINEPHRINE [Suspect]
     Active Substance: NOREPINEPHRINE
     Route: 042
  164. NOREPINEPHRINE [Suspect]
     Active Substance: NOREPINEPHRINE
     Dosage: DOSAGE FORM: UNKNOWN
     Route: 048
  165. NOREPINEPHRINE [Suspect]
     Active Substance: NOREPINEPHRINE
  166. NOREPINEPHRINE [Suspect]
     Active Substance: NOREPINEPHRINE
     Dosage: DOSAGE FORM: UNKNOWN
     Route: 048
  167. AMIODARONE HYDROCHLORIDE [Suspect]
     Active Substance: AMIODARONE HYDROCHLORIDE
     Indication: Ventricular fibrillation
     Dosage: DOSE FORM AND ROA: UNKNOWN
  168. AMIODARONE HYDROCHLORIDE [Suspect]
     Active Substance: AMIODARONE HYDROCHLORIDE
     Indication: Product used for unknown indication
  169. AMIODARONE HYDROCHLORIDE [Suspect]
     Active Substance: AMIODARONE HYDROCHLORIDE
     Indication: Off label use
     Dosage: DOSE FORM: UNKNOWN
     Route: 042
  170. AMIODARONE HYDROCHLORIDE [Suspect]
     Active Substance: AMIODARONE HYDROCHLORIDE
     Indication: Intentional product misuse
     Route: 042
  171. AMIODARONE HYDROCHLORIDE [Suspect]
     Active Substance: AMIODARONE HYDROCHLORIDE
     Indication: Drug therapy
     Route: 042
  172. AMIODARONE HYDROCHLORIDE [Suspect]
     Active Substance: AMIODARONE HYDROCHLORIDE
  173. AMIODARONE HYDROCHLORIDE [Suspect]
     Active Substance: AMIODARONE HYDROCHLORIDE
  174. AMIODARONE HYDROCHLORIDE [Suspect]
     Active Substance: AMIODARONE HYDROCHLORIDE
  175. AMIODARONE HYDROCHLORIDE [Suspect]
     Active Substance: AMIODARONE HYDROCHLORIDE
     Dosage: DOSE FORM AND ROA: UNKNOWN
  176. AMIODARONE HYDROCHLORIDE [Suspect]
     Active Substance: AMIODARONE HYDROCHLORIDE
     Route: 042
  177. AMIODARONE HYDROCHLORIDE [Suspect]
     Active Substance: AMIODARONE HYDROCHLORIDE
  178. AMIODARONE HYDROCHLORIDE [Suspect]
     Active Substance: AMIODARONE HYDROCHLORIDE
  179. AMIODARONE HYDROCHLORIDE [Suspect]
     Active Substance: AMIODARONE HYDROCHLORIDE
  180. AMIODARONE HYDROCHLORIDE [Suspect]
     Active Substance: AMIODARONE HYDROCHLORIDE
     Dosage: DOSE FORM AND ROA : UNKNOWN
  181. LANSOPRAZOLE [Suspect]
     Active Substance: LANSOPRAZOLE
     Indication: Off label use
     Dosage: CAPSULE, DELAYED RELEASE
     Route: 048
  182. LANSOPRAZOLE [Suspect]
     Active Substance: LANSOPRAZOLE
     Indication: Intentional product misuse
  183. LANSOPRAZOLE [Suspect]
     Active Substance: LANSOPRAZOLE
     Indication: Antacid therapy
  184. LANSOPRAZOLE [Suspect]
     Active Substance: LANSOPRAZOLE
     Indication: Off label use
     Route: 048
  185. LANSOPRAZOLE [Suspect]
     Active Substance: LANSOPRAZOLE
     Indication: Intentional product misuse
     Route: 048
  186. LANSOPRAZOLE [Suspect]
     Active Substance: LANSOPRAZOLE
     Indication: Antacid therapy
  187. SIMVASTATIN [Suspect]
     Active Substance: SIMVASTATIN
     Indication: Vitamin supplementation
     Route: 048
  188. SIMVASTATIN [Suspect]
     Active Substance: SIMVASTATIN
     Indication: Product used for unknown indication
  189. SIMVASTATIN [Suspect]
     Active Substance: SIMVASTATIN
     Indication: Off label use
  190. SIMVASTATIN [Suspect]
     Active Substance: SIMVASTATIN
     Indication: Blood cholesterol increased
  191. THEOPHYLLINE [Suspect]
     Active Substance: THEOPHYLLINE
     Indication: Off label use
     Dosage: ROA: UNKNOWN
  192. THEOPHYLLINE [Suspect]
     Active Substance: THEOPHYLLINE
     Indication: Intentional product misuse
  193. VASOPRESSIN [Suspect]
     Active Substance: VASOPRESSIN
     Indication: Thrombosis
     Route: 042
  194. VASOPRESSIN [Suspect]
     Active Substance: VASOPRESSIN
     Indication: Drug therapy
  195. VITAMIN C [Suspect]
     Active Substance: ASCORBIC ACID
     Indication: Constipation
     Route: 048
  196. SODIUM BICARBONATE [Suspect]
     Active Substance: SODIUM BICARBONATE
     Indication: Constipation
     Dosage: ROA: UNKNOWN
  197. THEOPHYLLINE [Suspect]
     Active Substance: THEOPHYLLINE
     Indication: Off label use
     Dosage: ROA: UNKNOWN
  198. THEOPHYLLINE [Suspect]
     Active Substance: THEOPHYLLINE
     Indication: Intentional product misuse
     Dosage: ROA: UNKNOWN
  199. THEOPHYLLINE [Suspect]
     Active Substance: THEOPHYLLINE
     Dosage: ROA: UNKNOWN
  200. THEOPHYLLINE [Suspect]
     Active Substance: THEOPHYLLINE
     Dosage: ROA: UNKNOWN
  201. THEOPHYLLINE [Suspect]
     Active Substance: THEOPHYLLINE
     Dosage: ROA: UNKNOWN
  202. THEOPHYLLINE [Suspect]
     Active Substance: THEOPHYLLINE
     Dosage: ROA: UNKNOWN
  203. THEOPHYLLINE [Suspect]
     Active Substance: THEOPHYLLINE
     Dosage: ROA: UNKNOWN
  204. THEOPHYLLINE [Suspect]
     Active Substance: THEOPHYLLINE
     Dosage: ROA: UNKNOWN
  205. VASOPRESSIN [Suspect]
     Active Substance: VASOPRESSIN
     Indication: Thrombosis
     Dosage: DOSAGE FORM: UNKNOWN
     Route: 042
  206. VASOPRESSIN [Suspect]
     Active Substance: VASOPRESSIN
     Indication: Drug therapy
     Dosage: DOSAGE FORM AND ROA: UNKNOWN
  207. VASOPRESSIN [Suspect]
     Active Substance: VASOPRESSIN
  208. VASOPRESSIN [Suspect]
     Active Substance: VASOPRESSIN
     Route: 017
  209. VASOPRESSIN [Suspect]
     Active Substance: VASOPRESSIN
     Route: 042
  210. VITAMIN K1 [Suspect]
     Active Substance: PHYTONADIONE
     Indication: Vitamin supplementation
     Dosage: DOSE FORM: UNKNOWN
     Route: 042
  211. VITAMIN K1 [Suspect]
     Active Substance: PHYTONADIONE
  212. VITAMIN K1 [Suspect]
     Active Substance: PHYTONADIONE
     Dosage: DOSE FORM: UNKNOWN
     Route: 042
  213. VITAMIN K1 [Suspect]
     Active Substance: PHYTONADIONE
     Route: 042
  214. HEPARIN SODIUM [Suspect]
     Active Substance: HEPARIN SODIUM
     Indication: Product used for unknown indication
     Route: 042
  215. HEPARIN SODIUM [Suspect]
     Active Substance: HEPARIN SODIUM
     Indication: Anticoagulant therapy
  216. AMIODARONE HYDROCHLORIDE [Suspect]
     Active Substance: AMIODARONE HYDROCHLORIDE
     Indication: Ventricular fibrillation
     Route: 042
  217. AMIODARONE HYDROCHLORIDE [Suspect]
     Active Substance: AMIODARONE HYDROCHLORIDE
     Indication: Product used for unknown indication
  218. AMIODARONE HYDROCHLORIDE [Suspect]
     Active Substance: AMIODARONE HYDROCHLORIDE
     Indication: Off label use
  219. AMIODARONE HYDROCHLORIDE [Suspect]
     Active Substance: AMIODARONE HYDROCHLORIDE
     Indication: Intentional product misuse
  220. AMIODARONE HYDROCHLORIDE [Suspect]
     Active Substance: AMIODARONE HYDROCHLORIDE
     Indication: Drug therapy
  221. SIMVASTATIN [Suspect]
     Active Substance: SIMVASTATIN
     Indication: Vitamin supplementation
     Route: 048
  222. SIMVASTATIN [Suspect]
     Active Substance: SIMVASTATIN
     Indication: Product used for unknown indication
  223. SIMVASTATIN [Suspect]
     Active Substance: SIMVASTATIN
     Indication: Off label use
  224. SIMVASTATIN [Suspect]
     Active Substance: SIMVASTATIN
     Indication: Blood cholesterol increased

REACTIONS (8)
  - Diabetes mellitus [Fatal]
  - Drug therapy [Fatal]
  - Drug hypersensitivity [Fatal]
  - Gout [Fatal]
  - Hypophosphataemia [Fatal]
  - Dyspnoea [Fatal]
  - Drug intolerance [Fatal]
  - Dry mouth [Fatal]
